FAERS Safety Report 23172642 (Version 5)
Quarter: 2024Q2

REPORT INFORMATION
  Report Type: Spontaneous
  Country: US (occurrence: US)
  Receive Date: 20231110
  Receipt Date: 20240520
  Transmission Date: 20240716
  Serious: Yes (Hospitalization, Other)
  Sender: FDA-Public Use
  Company Number: US-PFIZER INC-202300361873

PATIENT
  Age: 79 Year
  Sex: Female
  Weight: 57.143 kg

DRUGS (2)
  1. PREMARIN [Suspect]
     Active Substance: ESTROGENS, CONJUGATED
     Indication: Cystocele
     Dosage: UNK
     Route: 067
     Dates: start: 2018
  2. ESTRING [Concomitant]
     Active Substance: ESTRADIOL
     Indication: Cystocele
     Dosage: UNK

REACTIONS (4)
  - Pruritus [Recovered/Resolved]
  - Urinary tract infection [Not Recovered/Not Resolved]
  - Drug hypersensitivity [Recovered/Resolved]
  - Off label use [Unknown]

NARRATIVE: CASE EVENT DATE: 20180101
